FAERS Safety Report 4714711-1 (Version None)
Quarter: 2005Q3

REPORT INFORMATION
  Report Type: 
  Country: None (occurrence: None)
  Receive Date: 20050713
  Receipt Date: 20050630
  Transmission Date: 20060218
  Serious: Yes (Other)
  Sender: FDA-Public Use
  Company Number: 2005096099

PATIENT
  Sex: Female
  Weight: 113.3993 kg

DRUGS (4)
  1. BEXTRA [Suspect]
     Indication: RHEUMATOID ARTHRITIS
     Dosage: 10 MG (10 MG, 1 IN 1 D), ORAL
     Route: 048
     Dates: start: 20030301, end: 20030101
  2. CHAMOMILE OIL (CHAMOMILE OIL) [Suspect]
     Indication: DRY SKIN
  3. VICODIN [Concomitant]
  4. FOSAMAX [Concomitant]

REACTIONS (8)
  - CHEST PAIN [None]
  - DRY SKIN [None]
  - MALAISE [None]
  - OEDEMA PERIPHERAL [None]
  - PSORIASIS [None]
  - SKIN EXFOLIATION [None]
  - UTERINE HAEMORRHAGE [None]
  - UTERINE LEIOMYOMA [None]
